FAERS Safety Report 8932470 (Version 1)
Quarter: 2012Q4

REPORT INFORMATION
  Report Type: Spontaneous
  Country: US (occurrence: None)
  Receive Date: 20121126
  Receipt Date: 20121126
  Transmission Date: 20130627
  Serious: No
  Sender: FDA-Public Use
  Company Number: None

PATIENT
  Age: 39 Year
  Sex: Female
  Weight: 62.14 kg

DRUGS (1)
  1. ESCITALOPRAM 20 MG TEVA [Suspect]
     Indication: DEPRESSION
     Route: 048
     Dates: start: 20120319, end: 20120501

REACTIONS (3)
  - Anxiety [None]
  - Confusional state [None]
  - Dizziness [None]
